FAERS Safety Report 23085103 (Version 1)
Quarter: 2023Q4

REPORT INFORMATION
  Report Type: Spontaneous
  Country: US (occurrence: None)
  Receive Date: 20231017
  Receipt Date: 20231017
  Transmission Date: 20240110
  Serious: Yes (Disabling)
  Sender: FDA-Public Use
  Company Number: None

PATIENT
  Age: 84 Year
  Sex: Female
  Weight: 80.1 kg

DRUGS (10)
  1. PROLIA [Suspect]
     Active Substance: DENOSUMAB
     Indication: Osteoporosis
     Dosage: OTHER STRENGTH : 1 AMPULE;?OTHER QUANTITY : 1 INJECTION(S);?OTHER FREQUENCY : HAD ONLY 1;?
     Route: 058
     Dates: start: 20230222, end: 20230222
  2. ELIQUIS [Concomitant]
  3. DEVICE [Concomitant]
     Active Substance: DEVICE
  4. Multi vitamin [Concomitant]
  5. VITAMIN E [Concomitant]
     Active Substance: .ALPHA.-TOCOPHEROL
  6. COENZYME Q10 [Concomitant]
     Active Substance: DIETARY SUPPLEMENT\UBIDECARENONE
  7. Ginseng red tea [Concomitant]
  8. Ocuvite [Concomitant]
  9. Essential fatty acids [Concomitant]
  10. VITAMIN C [Concomitant]
     Active Substance: ASCORBIC ACID

REACTIONS (9)
  - Headache [None]
  - Lethargy [None]
  - Diarrhoea [None]
  - Skin atrophy [None]
  - Skin texture abnormal [None]
  - Depression [None]
  - Skin fissures [None]
  - Visual impairment [None]
  - Arrhythmia supraventricular [None]

NARRATIVE: CASE EVENT DATE: 20230220
